FAERS Safety Report 5568779-3 (Version None)
Quarter: 2007Q4

REPORT INFORMATION
  Report Type: 
  Country: None (occurrence: None)
  Receive Date: 20071220
  Receipt Date: 20070105
  Transmission Date: 20080405
  Serious: No
  Sender: FDA-Public Use
  Company Number: A0634494A

PATIENT
  Age: 14 Year
  Sex: Male

DRUGS (1)
  1. AVODART [Suspect]
     Indication: DRUG USE FOR UNKNOWN INDICATION
     Dosage: .5MG SINGLE DOSE
     Route: 048
     Dates: start: 20070105, end: 20070105

REACTIONS (1)
  - DRUG ADMINISTRATION ERROR [None]
